FAERS Safety Report 4490962-9 (Version None)
Quarter: 2004Q3

REPORT INFORMATION
  Report Type: 
  Country: None (occurrence: None)
  Receive Date: 20040927
  Receipt Date: 20040806
  Transmission Date: 20050211
  Serious: No
  Sender: FDA-Public Use
  Company Number: USA040874887

PATIENT
  Sex: Male

DRUGS (2)
  1. STRATTERA [Suspect]
     Dosage: 40 MG DAY
     Dates: start: 20030801, end: 20040805
  2. ADDERALL 10 [Concomitant]

REACTIONS (2)
  - STOMACH DISCOMFORT [None]
  - TACHYCARDIA [None]
